FAERS Safety Report 8572712-X (Version None)
Quarter: 2012Q3

REPORT INFORMATION
  Report Type: 
  Country: None (occurrence: None)
  Receive Date: 20120806
  Receipt Date: 20120801
  Transmission Date: 20120928
  Serious: No
  Sender: FDA-Public Use
  Company Number: US-PFIZER INC-2012187349

PATIENT
  Age: 56 Year
  Sex: Female
  Weight: 72.562 kg

DRUGS (10)
  1. LYRICA [Suspect]
     Dosage: 225 MG, 2X/DAY
     Route: 048
  2. TRAZODONE [Concomitant]
     Indication: DEPRESSION
     Dosage: 150 MG, 2X/DAY
  3. TRAMADOL [Concomitant]
     Indication: PAIN
     Dosage: 100 MG, 1X/DAY
  4. LYRICA [Suspect]
     Indication: FIBROMYALGIA
     Dosage: 150 MG, 2X/DAY
     Route: 048
  5. LEVOTHYROXINE [Concomitant]
     Indication: HYPOTHYROIDISM
     Dosage: 150 MG, 1X/DAY
     Route: 048
  6. ESTRADIOL [Concomitant]
     Indication: HOT FLUSH
     Dosage: 1 DF, 1X/DAY
     Route: 048
  7. TRIAMTERENE AND HYDROCHLOROTHIAZIDE [Concomitant]
     Indication: FIBROMYALGIA
     Dosage: 3 7.5/25MG ONCE A DAY
  8. MEDROXYPROGESTERONE [Concomitant]
     Indication: HOT FLUSH
     Dosage: 2.5 MG, 1X/DAY
     Route: 048
  9. HYDROXYCHLOROQUINE [Concomitant]
     Indication: AUTOIMMUNE DISORDER
     Dosage: 200 MG, 1X/DAY
  10. IBUPROFEN (ADVIL) [Concomitant]
     Indication: HEADACHE
     Dosage: UNK, AS NEEDED

REACTIONS (8)
  - HYPOKINESIA [None]
  - ACTIVITIES OF DAILY LIVING IMPAIRED [None]
  - PAIN [None]
  - GENERAL PHYSICAL CONDITION ABNORMAL [None]
  - RESTLESS LEGS SYNDROME [None]
  - DRUG INEFFECTIVE [None]
  - FIBROMYALGIA [None]
  - WEIGHT FLUCTUATION [None]
